FAERS Safety Report 7065354-9 (Version None)
Quarter: 2010Q4

REPORT INFORMATION
  Report Type: 
  Country: None (occurrence: None)
  Receive Date: 20101027
  Receipt Date: 20101015
  Transmission Date: 20110411
  Serious: Yes (Life-Threatening, Hospitalization)
  Sender: FDA-Public Use
  Company Number: GB-WATSON-2010-13983

PATIENT
  Age: 75 Year
  Sex: Female

DRUGS (8)
  1. ALENDRONATE SODIUM (WATSON LABORATORIES) [Suspect]
     Indication: OSTEOPOROSIS PROPHYLAXIS
     Dosage: 70 MG, SINGLE
     Route: 048
     Dates: start: 20100714, end: 20100714
  2. ALENDRONATE SODIUM (WATSON LABORATORIES) [Suspect]
  3. ACICLOVIR [Concomitant]
     Indication: PRODUCT USED FOR UNKNOWN INDICATION
     Dosage: UNK
  4. BISPHOSPHONATES [Concomitant]
     Indication: OSTEOPOROSIS
     Dosage: UNK
  5. CALCICHEW                          /00108001/ [Concomitant]
     Indication: PRODUCT USED FOR UNKNOWN INDICATION
     Dosage: 1 DF, BID
     Route: 048
     Dates: start: 20100701
  6. OMEPRAZOLE [Concomitant]
     Indication: PRODUCT USED FOR UNKNOWN INDICATION
     Dosage: 20 MG, UNKNOWN
     Route: 048
  7. PREDNISOLONE [Concomitant]
     Indication: TEMPORAL ARTERITIS
     Dosage: 6 MG, UNKNOWN
     Route: 048
  8. SIMVASTATIN [Concomitant]
     Indication: PRODUCT USED FOR UNKNOWN INDICATION
     Dosage: 40 MG, DAILY
     Route: 048

REACTIONS (1)
  - IDIOPATHIC THROMBOCYTOPENIC PURPURA [None]
